FAERS Safety Report 7708721-X (Version None)
Quarter: 2011Q3

REPORT INFORMATION
  Report Type: 
  Country: None (occurrence: None)
  Receive Date: 20110825
  Receipt Date: 20110825
  Transmission Date: 20111222
  Serious: No
  Sender: FDA-Public Use
  Company Number: None

PATIENT

DRUGS (1)
  1. SODIUM CHLORIDE [Suspect]
     Dosage: APPROX 1 INCH
     Route: 047
     Dates: start: 20110822, end: 20110822

REACTIONS (1)
  - LIQUID PRODUCT PHYSICAL ISSUE [None]
